FAERS Safety Report 7331614-7 (Version None)
Quarter: 2011Q1

REPORT INFORMATION
  Report Type: 
  Country: None (occurrence: None)
  Receive Date: 20110228
  Receipt Date: 20110228
  Transmission Date: 20110831
  Serious: Yes (Other)
  Sender: FDA-Public Use
  Company Number: None

PATIENT

DRUGS (1)
  1. LOSARTAN POTASSIUM [Suspect]
     Indication: HYPERTENSION
     Dates: start: 20101001, end: 20101201

REACTIONS (5)
  - INSOMNIA [None]
  - PRODUCT FORMULATION ISSUE [None]
  - PRODUCT COLOUR ISSUE [None]
  - MOOD SWINGS [None]
  - IRRITABILITY [None]
